FAERS Safety Report 9974248 (Version 1)
Quarter: 2014Q1

REPORT INFORMATION
  Report Type: Report from Study
  Country: US (occurrence: US)
  Receive Date: 20140306
  Receipt Date: 20140306
  Transmission Date: 20141002
  Serious: No
  Sender: FDA-Public Use
  Company Number: US-ABBVIE-13P-163-1158149-00

PATIENT
  Age: 49 Year
  Sex: Male

DRUGS (3)
  1. HUMIRA [Suspect]
     Indication: CROHN^S DISEASE
     Dates: start: 20130918
  2. HUMIRA [Suspect]
     Dosage: SECOND DOSE
  3. HUMIRA [Suspect]

REACTIONS (2)
  - Feeling abnormal [Not Recovered/Not Resolved]
  - Pain in jaw [Not Recovered/Not Resolved]
